FAERS Safety Report 14481947 (Version 1)
Quarter: 2018Q1

REPORT INFORMATION
  Report Type: Spontaneous
  Country: US (occurrence: US)
  Receive Date: 20180202
  Receipt Date: 20180202
  Transmission Date: 20180509
  Serious: No
  Sender: FDA-Public Use
  Company Number: None

PATIENT
  Sex: Male
  Weight: 87.75 kg

DRUGS (2)
  1. SULFASALAZINE. [Suspect]
     Active Substance: SULFASALAZINE
     Indication: CROHN^S DISEASE
     Dosage: ?          QUANTITY:2 TABLET(S);?
     Route: 048
  2. FOLIC ACID. [Concomitant]
     Active Substance: FOLIC ACID

REACTIONS (1)
  - Hypoaesthesia [None]
